FAERS Safety Report 11982341 (Version 1)
Quarter: 2016Q1

REPORT INFORMATION
  Report Type: Spontaneous
  Country: US (occurrence: None)
  Receive Date: 20160129
  Receipt Date: 20160129
  Transmission Date: 20160526
  Serious: Yes (Other)
  Sender: FDA-Public Use
  Company Number: None

PATIENT
  Age: 48 Year
  Sex: Female
  Weight: 59.4 kg

DRUGS (1)
  1. CEFAZOLIN 2,000 MG SANDOZ INC [Suspect]
     Active Substance: CEFAZOLIN
     Indication: PROPHYLAXIS
     Route: 042
     Dates: start: 20151103, end: 20151103

REACTIONS (4)
  - Pruritus generalised [None]
  - Urticaria [None]
  - Pruritus [None]
  - Hypersensitivity [None]

NARRATIVE: CASE EVENT DATE: 20151103
